FAERS Safety Report 15428020 (Version 1)
Quarter: 2018Q3

REPORT INFORMATION
  Report Type: Spontaneous
  Country: US (occurrence: US)
  Receive Date: 20180926
  Receipt Date: 20180926
  Transmission Date: 20181010
  Serious: No
  Sender: FDA-Public Use
  Company Number: US-PRINSTON PHARMACEUTICAL INC.-2018PRN00757

PATIENT
  Age: 72 Year
  Sex: Female
  Weight: 83.45 kg

DRUGS (5)
  1. HYDROCHLOROTHIAZIDE (ACCORD) [Suspect]
     Active Substance: HYDROCHLOROTHIAZIDE
     Dosage: UNK, TWICE
     Dates: start: 2018
  2. VALSARTAN. [Suspect]
     Active Substance: VALSARTAN
     Dosage: 20 MG, 1X/DAY
     Route: 048
     Dates: start: 201808, end: 201808
  3. NATEGLINIDE. [Concomitant]
     Active Substance: NATEGLINIDE
  4. VALSARTAN. [Suspect]
     Active Substance: VALSARTAN
     Indication: HYPERTENSION
     Dosage: 40 MG, 2X/DAY
     Route: 048
     Dates: end: 201808
  5. VENTOLIN [Concomitant]
     Active Substance: ALBUTEROL SULFATE

REACTIONS (1)
  - Blood glucose increased [Recovering/Resolving]

NARRATIVE: CASE EVENT DATE: 20180808
